FAERS Safety Report 15332685 (Version 4)
Quarter: 2018Q4

REPORT INFORMATION
  Report Type: Report from Study
  Country: None (occurrence: US)
  Receive Date: 20180830
  Receipt Date: 20181227
  Transmission Date: 20190204
  Serious: Yes (Death, Other)
  Sender: FDA-Public Use
  Company Number: US-ABBVIE-18S-163-2467939-00

PATIENT
  Age: 73 Year
  Sex: Male

DRUGS (7)
  1. DUOPA [Suspect]
     Active Substance: CARBIDOPA\LEVODOPA
     Route: 050
     Dates: start: 20180915, end: 20181214
  2. ALEVE [Concomitant]
     Active Substance: NAPROXEN SODIUM
     Indication: HOSPICE CARE
     Route: 065
  3. DUOPA [Suspect]
     Active Substance: CARBIDOPA\LEVODOPA
     Indication: PARKINSON^S DISEASE
     Dosage: MISSED DOSES FOR 4 DAYS IN AUG 2018
     Route: 050
     Dates: end: 201808
  4. TRAZODONE [Concomitant]
     Active Substance: TRAZODONE HYDROCHLORIDE
     Indication: SLEEP DISORDER
  5. MORPHINE [Concomitant]
     Active Substance: MORPHINE
     Indication: HOSPICE CARE
     Route: 065
  6. DUOPA [Suspect]
     Active Substance: CARBIDOPA\LEVODOPA
     Route: 050
     Dates: start: 201808, end: 2018
  7. NAPROSYN [Concomitant]
     Active Substance: NAPROXEN
     Indication: BACK PAIN

REACTIONS (5)
  - Oxygen saturation decreased [Unknown]
  - Musculoskeletal stiffness [Not Recovered/Not Resolved]
  - Pneumonia [Recovering/Resolving]
  - Pulmonary oedema [Fatal]
  - Decubitus ulcer [Recovering/Resolving]

NARRATIVE: CASE EVENT DATE: 201808
